FAERS Safety Report 8554558-1 (Version None)
Quarter: 2012Q3

REPORT INFORMATION
  Report Type: 
  Country: None (occurrence: None)
  Receive Date: 20120724
  Receipt Date: 20120724
  Transmission Date: 20120928
  Serious: Yes (Life-Threatening, Disabling, Other)
  Sender: FDA-Public Use
  Company Number: None

PATIENT
  Sex: Male
  Weight: 113.3993 kg

DRUGS (3)
  1. COREG [Suspect]
     Dosage: 6.2 + 3.25 2X PO
     Route: 048
  2. COREG [Suspect]
     Indication: CARDIAC DISORDER
     Dosage: 12.5 2X PO
     Route: 048
     Dates: start: 20110315, end: 20120724
  3. COREG [Suspect]
     Indication: HYPERTENSION
     Dosage: 12.5 2X PO
     Route: 048
     Dates: start: 20110315, end: 20120724

REACTIONS (7)
  - EYE HAEMORRHAGE [None]
  - TENDON INJURY [None]
  - FALL [None]
  - VISUAL IMPAIRMENT [None]
  - ARTHROPATHY [None]
  - NIGHT BLINDNESS [None]
  - ASTHENIA [None]
